FAERS Safety Report 14278350 (Version 1)
Quarter: 2017Q4

REPORT INFORMATION
  Report Type: Spontaneous
  Country: MY (occurrence: MY)
  Receive Date: 20171212
  Receipt Date: 20171212
  Transmission Date: 20180321
  Serious: Yes (Death, Hospitalization)
  Sender: FDA-Public Use
  Company Number: MY-SA-2017SA245495

PATIENT
  Age: 59 Year
  Sex: Male

DRUGS (6)
  1. CHLOROQUINE PHOSPHATE. [Suspect]
     Active Substance: CHLOROQUINE PHOSPHATE
     Indication: MALARIA
     Route: 065
  2. FUROSEMIDE. [Concomitant]
     Active Substance: FUROSEMIDE
     Indication: PULMONARY OEDEMA
     Route: 065
  3. CEFTRIAXONE. [Concomitant]
     Active Substance: CEFTRIAXONE
     Route: 042
  4. PRIMAQUINE [Suspect]
     Active Substance: PRIMAQUINE PHOSPHATE
     Indication: MALARIA
     Route: 065
  5. QUININE (SALT NOT SPECIFIED) [Suspect]
     Active Substance: QUININE
     Indication: MALARIA
     Route: 042
  6. ARTESUNATE [Concomitant]
     Active Substance: ARTESUNATE
     Indication: MALARIA
     Route: 042

REACTIONS (14)
  - Rales [Fatal]
  - Pulmonary haemorrhage [Fatal]
  - Respiratory acidosis [Fatal]
  - Pleural effusion [Fatal]
  - Hypoxia [Fatal]
  - Epistaxis [Fatal]
  - Lung consolidation [Fatal]
  - Pneumonitis [Fatal]
  - Respiratory failure [Fatal]
  - Acute respiratory distress syndrome [Fatal]
  - Traumatic lung injury [Fatal]
  - Lethargy [Fatal]
  - Haemoptysis [Fatal]
  - Dyspnoea [Fatal]
